FAERS Safety Report 5075795-7 (Version None)
Quarter: 2006Q3

REPORT INFORMATION
  Report Type: 
  Country: None (occurrence: None)
  Receive Date: 20060809
  Receipt Date: 20060713
  Transmission Date: 20061208
  Serious: Yes (Other)
  Sender: FDA-Public Use
  Company Number: US-GLAXOSMITHKLINE-A0613785A

PATIENT
  Age: 80 Year
  Sex: Female

DRUGS (12)
  1. COREG [Suspect]
     Indication: DRUG USE FOR UNKNOWN INDICATION
     Dosage: 25MG TWICE PER DAY
     Route: 048
     Dates: start: 20051027, end: 20060726
  2. REQUIP [Suspect]
     Indication: DRUG USE FOR UNKNOWN INDICATION
     Route: 048
     Dates: start: 20051027, end: 20060608
  3. DIOVAN [Concomitant]
  4. ASPIRIN [Concomitant]
  5. ZOCOR [Concomitant]
  6. LASIX [Concomitant]
  7. ALDACTONE [Concomitant]
  8. NORVASC [Concomitant]
  9. LISINOPRIL [Concomitant]
  10. FOSAMAX [Concomitant]
  11. IRON [Concomitant]
  12. TOPROL-XL [Concomitant]
     Dates: end: 20051027

REACTIONS (3)
  - HYPOKALAEMIA [None]
  - MUSCULOSKELETAL STIFFNESS [None]
  - MYOCLONUS [None]
